FAERS Safety Report 10330763 (Version 1)
Quarter: 2014Q3

REPORT INFORMATION
  Report Type: Report from Study
  Country: GB (occurrence: GB)
  Receive Date: 20140722
  Receipt Date: 20140722
  Transmission Date: 20150326
  Serious: Yes (Death)
  Sender: FDA-Public Use
  Company Number: GB-ROCHE-1435881

PATIENT
  Age: 67 Year
  Sex: Female

DRUGS (17)
  1. CAPECITABINE [Suspect]
     Active Substance: CAPECITABINE
     Indication: OESOPHAGEAL CARCINOMA
     Route: 048
     Dates: end: 20120511
  2. OXALIPLATIN. [Concomitant]
     Active Substance: OXALIPLATIN
     Indication: OESOPHAGEAL CARCINOMA
     Route: 042
     Dates: end: 20120511
  3. APREPITANT [Concomitant]
     Active Substance: APREPITANT
     Route: 048
     Dates: end: 20120511
  4. SODIUM CHLORIDE. [Concomitant]
     Active Substance: SODIUM CHLORIDE
     Route: 042
     Dates: end: 20120511
  5. CYCLIZINE [Concomitant]
     Active Substance: CYCLIZINE
     Indication: OESOPHAGEAL CARCINOMA
     Route: 048
     Dates: end: 20120511
  6. DEXAMETHASONE (ORAL) [Concomitant]
     Route: 048
     Dates: end: 20120511
  7. APREPITANT [Concomitant]
     Active Substance: APREPITANT
     Indication: OESOPHAGEAL CARCINOMA
     Route: 048
     Dates: end: 20120511
  8. MAGNESIUM SULPHATE [Concomitant]
     Active Substance: MAGNESIUM SULFATE
     Indication: OESOPHAGEAL CARCINOMA
     Route: 042
     Dates: end: 20120420
  9. ONDANSETRON [Concomitant]
     Active Substance: ONDANSETRON
     Indication: OESOPHAGEAL CARCINOMA
     Route: 048
     Dates: end: 20120511
  10. ONDANSETRON [Concomitant]
     Active Substance: ONDANSETRON
     Route: 048
     Dates: end: 20130511
  11. GLUCOSE 5% [Concomitant]
     Active Substance: DEXTROSE
     Indication: OESOPHAGEAL CARCINOMA
     Route: 065
     Dates: end: 20120511
  12. DOMPERIDONE [Concomitant]
     Active Substance: DOMPERIDONE
     Indication: OESOPHAGEAL CARCINOMA
     Route: 048
     Dates: end: 20120511
  13. EPIRUBICIN [Concomitant]
     Active Substance: EPIRUBICIN
     Indication: OESOPHAGEAL CARCINOMA
     Route: 040
     Dates: end: 20120511
  14. LOPERAMIDE [Concomitant]
     Active Substance: LOPERAMIDE
     Indication: OESOPHAGEAL CARCINOMA
     Route: 048
     Dates: end: 20120511
  15. SODIUM CHLORIDE. [Concomitant]
     Active Substance: SODIUM CHLORIDE
     Indication: OESOPHAGEAL CARCINOMA
     Route: 042
     Dates: end: 20120511
  16. CALCIUM GLUCONATE. [Concomitant]
     Active Substance: CALCIUM GLUCONATE
     Indication: OESOPHAGEAL CARCINOMA
     Route: 042
     Dates: end: 20120420
  17. DEXAMETHASONE (ORAL) [Concomitant]
     Indication: OESOPHAGEAL CARCINOMA
     Route: 048
     Dates: end: 20120511

REACTIONS (1)
  - Death [Fatal]
